FAERS Safety Report 7472873-X (Version None)
Quarter: 2011Q2

REPORT INFORMATION
  Report Type: 
  Country: None (occurrence: None)
  Receive Date: 20110511
  Receipt Date: 20110427
  Transmission Date: 20111010
  Serious: Yes (Other)
  Sender: FDA-Public Use
  Company Number: GB-JNJFOC-20110412434

PATIENT
  Age: 73 Year
  Sex: Male
  Weight: 83 kg

DRUGS (3)
  1. SULFASALAZINE [Concomitant]
  2. REMICADE [Suspect]
     Indication: RHEUMATOID ARTHRITIS
     Route: 042
  3. PENICILLAMINE [Concomitant]

REACTIONS (1)
  - PROSTATE CANCER [None]
